FAERS Safety Report 9989268 (Version 1)
Quarter: 2013Q4

REPORT INFORMATION
  Report Type: Spontaneous
  Country: US (occurrence: None)
  Receive Date: 20131024
  Receipt Date: 20131024
  Transmission Date: 20140711
  Serious: Yes (Life-Threatening, Hospitalization, Other)
  Sender: FDA-Public Use
  Company Number: ADR-2012-00421

PATIENT
  Sex: Male

DRUGS (3)
  1. BACLOFEN INTRATHECAL (BACLOFEN INJECTION) [Suspect]
     Indication: PAIN
     Dosage: DAY
  2. HYDROMORPHONE INTRATHECAL [Suspect]
     Indication: PAIN
     Dosage: DAY
  3. FENTANYL INTRATHECAL 500 MCG/ML [Suspect]
     Dosage: DAY

REACTIONS (9)
  - Device related infection [None]
  - Erythema [None]
  - Inflammation [None]
  - Medical device complication [None]
  - Abscess [None]
  - Meningitis [None]
  - Treatment noncompliance [None]
  - Haematoma [None]
  - Enterococcal infection [None]
